FAERS Safety Report 8521362-X (Version None)
Quarter: 2012Q3

REPORT INFORMATION
  Report Type: 
  Country: None (occurrence: None)
  Receive Date: 20120712
  Receipt Date: 20120712
  Transmission Date: 20120928
  Serious: Yes (Hospitalization)
  Sender: FDA-Public Use
  Company Number: None

PATIENT
  Sex: Female

DRUGS (1)
  1. ENBREL [Suspect]
     Indication: RHEUMATOID ARTHRITIS
     Dosage: 50MG EVERY WEEK SQ
     Route: 058
     Dates: start: 20120202, end: 20120617

REACTIONS (1)
  - CARDIAC FAILURE CONGESTIVE [None]
